FAERS Safety Report 4607618-1 (Version None)
Quarter: 2005Q1

REPORT INFORMATION
  Report Type: 
  Country: None (occurrence: None)
  Receive Date: 20050310
  Receipt Date: 20050225
  Transmission Date: 20050727
  Serious: Yes (Life-Threatening)
  Sender: FDA-Public Use
  Company Number: 2005038205

PATIENT
  Age: 51 Year
  Sex: Male

DRUGS (10)
  1. NIFEDIPINE [Suspect]
     Indication: ILL-DEFINED DISORDER
  2. ASPIRIN [Suspect]
     Indication: ILL-DEFINED DISORDER
  3. FUROSEMIDE [Suspect]
     Indication: ILL-DEFINED DISORDER
  4. ENALAPRIL HEUMANN (ENALAPRIL MALEATE) [Suspect]
     Indication: ILL-DEFINED DISORDER
  5. CARVEDILOL [Suspect]
     Indication: ILL-DEFINED DISORDER
  6. DIGOXIN [Suspect]
     Indication: ILL-DEFINED DISORDER
  7. CANRENOIC ACID (CANRENOIC ACID) [Suspect]
     Indication: ILL-DEFINED DISORDER
  8. ALLOPURINOL [Suspect]
     Indication: ILL-DEFINED DISORDER
  9. BUPROPION (BUPROPION) [Suspect]
     Indication: ILL-DEFINED DISORDER
  10. TECHNETIUM TC 99M PENTETATE (TECHNETIUM TC 99M PENTETATE) [Suspect]
     Indication: ILL-DEFINED DISORDER

REACTIONS (1)
  - TOXIC EPIDERMAL NECROLYSIS [None]
